FAERS Safety Report 12675557 (Version 1)
Quarter: 2016Q3

REPORT INFORMATION
  Report Type: Report from Study
  Country: US (occurrence: US)
  Receive Date: 20160823
  Receipt Date: 20160823
  Transmission Date: 20161109
  Serious: Yes (Other)
  Sender: FDA-Public Use
  Company Number: US-AMGEN-USASL2016102442

PATIENT
  Age: 72 Year
  Sex: Female
  Weight: 63.73 kg

DRUGS (1)
  1. REPATHA [Suspect]
     Active Substance: EVOLOCUMAB
     Indication: BLOOD CHOLESTEROL INCREASED
     Dosage: 140 MG/ML, Q2WK
     Route: 030
     Dates: start: 20160804

REACTIONS (5)
  - Asthenia [Recovered/Resolved]
  - Dizziness [Unknown]
  - Vomiting [Unknown]
  - Nausea [Recovering/Resolving]
  - Off label use [Recovering/Resolving]

NARRATIVE: CASE EVENT DATE: 20160804
